FAERS Safety Report 9840123 (Version 1)
Quarter: 2013Q4

REPORT INFORMATION
  Report Type: Spontaneous
  Country: US (occurrence: None)
  Receive Date: 20131209
  Receipt Date: 20131209
  Transmission Date: 20140711
  Serious: Yes (Other)
  Sender: FDA-Public Use
  Company Number: ALL1-2012-05662

PATIENT
  Age: 48 Year
  Sex: Female
  Weight: 55.8 kg

DRUGS (7)
  1. ADDERALL XR [Suspect]
     Indication: PRODUCT USED FOR UNKNOWN INDICATION
     Route: 048
  2. SYNTHROID [Suspect]
     Indication: HYPOTHYROIDISM
  3. PREMARIN [Suspect]
     Indication: OESTROGEN REPLACEMENT THERAPY
     Route: 048
  4. ATIVAN (LORAZEPAM) [Concomitant]
  5. CLONOPIN (CLONAZEPAM) [Concomitant]
  6. WELLBUTRIN XL (BUPROPION HYDROCHLORIDE) [Concomitant]
  7. PROGESTERONE (PROGESTERONE) [Concomitant]

REACTIONS (36)
  - Psychotic disorder [None]
  - Violence-related symptom [None]
  - Hot flush [None]
  - Dehydration [None]
  - Disturbance in attention [None]
  - Oral mucosal discolouration [None]
  - Tongue disorder [None]
  - Visual impairment [None]
  - Pain in extremity [None]
  - Aphasia [None]
  - Vulvovaginal dryness [None]
  - Vulvovaginal discomfort [None]
  - Hair texture abnormal [None]
  - Muscle spasms [None]
  - Cold sweat [None]
  - Dry skin [None]
  - Arthropathy [None]
  - Sleep disorder [None]
  - Breast atrophy [None]
  - Mood swings [None]
  - Memory impairment [None]
  - Neurological symptom [None]
  - Personality change [None]
  - Contusion [None]
  - Abdominal distension [None]
  - Unevaluable event [None]
  - Chest pain [None]
  - Dyspepsia [None]
  - Anger [None]
  - Rash [None]
  - Weight decreased [None]
  - Alopecia [None]
  - Nausea [None]
  - Diarrhoea [None]
  - Fatigue [None]
  - Hyperhidrosis [None]
